FAERS Safety Report 5212896-4 (Version None)
Quarter: 2007Q1

REPORT INFORMATION
  Report Type: 
  Country: None (occurrence: None)
  Receive Date: 20070116
  Receipt Date: 20040105
  Transmission Date: 20070707
  Serious: Yes (Death, Other)
  Sender: FDA-Public Use
  Company Number: GXKR2007US00505

PATIENT
  Age: 62 Year
  Sex: Female

DRUGS (5)
  1. MIRTAZAPINE [Suspect]
  2. DIPHENHYDRAMINE HCL [Suspect]
  3. HYDROCODONE BITARTRATE [Suspect]
  4. QUETIAPINE FUMARATE [Suspect]
  5. TEMAZEPAM [Concomitant]

REACTIONS (5)
  - ARTERIOSCLEROSIS [None]
  - COMPLETED SUICIDE [None]
  - DRUG TOXICITY [None]
  - PULMONARY CONGESTION [None]
  - PULMONARY OEDEMA [None]
